FAERS Safety Report 4501017-9 (Version None)
Quarter: 2004Q4

REPORT INFORMATION
  Report Type: 
  Country: None (occurrence: None)
  Receive Date: 20041115
  Receipt Date: 20041108
  Transmission Date: 20050328
  Serious: Yes (Other)
  Sender: FDA-Public Use
  Company Number: NL-GLAXOSMITHKLINE-B0356733A

PATIENT
  Age: 86 Year
  Sex: Male

DRUGS (3)
  1. AMOXICILLIN AND CLAVULANATE POTASSIUM [Suspect]
     Indication: URINARY TRACT INFECTION
     Route: 065
     Dates: start: 20040902, end: 20040912
  2. ASCAL 38 [Concomitant]
     Indication: DRUG USE FOR UNKNOWN INDICATION
     Dosage: 38U UNKNOWN
     Route: 065
  3. DIPIPERON [Concomitant]
     Indication: DRUG USE FOR UNKNOWN INDICATION
     Dosage: 5DROP PER DAY
     Route: 065

REACTIONS (4)
  - ALANINE AMINOTRANSFERASE ABNORMAL [None]
  - ASPARTATE AMINOTRANSFERASE ABNORMAL [None]
  - GAMMA-GLUTAMYLTRANSFERASE ABNORMAL [None]
  - LIVER FUNCTION TEST ABNORMAL [None]
